FAERS Safety Report 6687395-3 (Version None)
Quarter: 2010Q2

REPORT INFORMATION
  Report Type: 
  Country: None (occurrence: None)
  Receive Date: 20100419
  Receipt Date: 20100406
  Transmission Date: 20101027
  Serious: Yes (Life-Threatening, Hospitalization, Other)
  Sender: FDA-Public Use
  Company Number: US-ELI_LILLY_AND_COMPANY-US201002006294

PATIENT
  Age: 45 Year
  Sex: Male
  Weight: 117.91 kg

DRUGS (9)
  1. ZYPREXA [Suspect]
     Indication: SCHIZOPHRENIA
     Dosage: 30 MG, DAILY (1/D)
     Route: 065
     Dates: start: 20050101
  2. ZYPREXA [Suspect]
     Dosage: 45 MG, DAILY (1/D)
     Dates: start: 20050101
  3. LISINOPRIL HYDROCHLORTHIAZID [Concomitant]
     Indication: HYPERTENSION
     Dosage: 1 D/F, DAILY (1/D)
     Route: 048
     Dates: start: 20080101
  4. LAMICTAL [Concomitant]
     Dosage: 400 MG, DAILY (1/D)
     Dates: start: 20050101
  5. WELLBUTRIN [Concomitant]
     Dosage: 200 MG, 2/D
     Route: 048
     Dates: start: 20050101
  6. SEROQUEL [Concomitant]
     Dosage: 300 MG, DAILY (1/D)
     Dates: start: 20050101
  7. SEROQUEL [Concomitant]
     Dosage: 450 MG, DAILY (1/D)
     Dates: start: 20050101
  8. AMBIEN [Concomitant]
     Indication: SLEEP DISORDER
     Dosage: 5 MG, EACH EVENING
     Route: 048
     Dates: start: 20050101
  9. ASPIRIN [Concomitant]
     Dosage: 81 MG, EACH EVENING
     Dates: start: 20100322

REACTIONS (9)
  - BLOOD TRIGLYCERIDES INCREASED [None]
  - HYPERVENTILATION [None]
  - LOW DENSITY LIPOPROTEIN INCREASED [None]
  - MALAISE [None]
  - NAUSEA [None]
  - OVERDOSE [None]
  - TYPE 1 DIABETES MELLITUS [None]
  - VOMITING [None]
  - WEIGHT DECREASED [None]
